FAERS Safety Report 8282972-0 (Version None)
Quarter: 2012Q2

REPORT INFORMATION
  Report Type: 
  Country: None (occurrence: None)
  Receive Date: 20120413
  Receipt Date: 20120329
  Transmission Date: 20120825
  Serious: Yes (Other)
  Sender: FDA-Public Use
  Company Number: FR-ROCHE-1054691

PATIENT
  Sex: Male
  Weight: 81.6 kg

DRUGS (4)
  1. MYCOPHENOLATE MOFETIL (CELLCEPT) [Suspect]
     Indication: TRANSPLANT REJECTION
     Route: 002
     Dates: start: 20110321
  2. EVEROLIMUS [Suspect]
     Indication: TRANSPLANT REJECTION
     Dates: start: 20110516, end: 20120327
  3. PROGRAF [Concomitant]
     Dates: start: 20110328
  4. PREDNISONE TAB [Suspect]
     Indication: TRANSPLANT REJECTION
     Route: 002
     Dates: start: 20110322, end: 20111010

REACTIONS (1)
  - TRANSPLANT REJECTION [None]
